FAERS Safety Report 13194701 (Version 1)
Quarter: 2017Q1

REPORT INFORMATION
  Report Type: Spontaneous
  Country: US (occurrence: US)
  Receive Date: 20170207
  Receipt Date: 20170207
  Transmission Date: 20170428
  Serious: No
  Sender: FDA-Public Use
  Company Number: US-JAZZ-2016-US-012585

PATIENT

DRUGS (10)
  1. MORPHINE SULF [Suspect]
     Active Substance: MORPHINE SULFATE
     Indication: PAIN
     Dosage: 0.229 MG, QH
     Route: 037
  2. PRIALT [Suspect]
     Active Substance: ZICONOTIDE ACETATE
     Indication: PAIN
     Dosage: 0.042 ?G, QH
     Route: 037
     Dates: start: 2014
  3. MORPHINE SULF [Suspect]
     Active Substance: MORPHINE SULFATE
     Indication: COMPLEX REGIONAL PAIN SYNDROME
  4. PRIALT [Suspect]
     Active Substance: ZICONOTIDE ACETATE
     Indication: COMPLEX REGIONAL PAIN SYNDROME
     Dosage: 0.083 ?G, QH
     Route: 037
  5. PRIALT [Suspect]
     Active Substance: ZICONOTIDE ACETATE
     Indication: SPINAL PAIN
     Dosage: 0.136 ?G, QH
     Route: 037
  6. MORPHINE SULF [Suspect]
     Active Substance: MORPHINE SULFATE
     Indication: SPINAL PAIN
  7. BUPIVACAINE. [Suspect]
     Active Substance: BUPIVACAINE
     Indication: PAIN
     Dosage: .344 MG, QH
     Route: 037
  8. BUPIVACAINE. [Suspect]
     Active Substance: BUPIVACAINE
     Indication: COMPLEX REGIONAL PAIN SYNDROME
  9. PRIALT [Suspect]
     Active Substance: ZICONOTIDE ACETATE
     Dosage: 0.083 ?G, QH
     Route: 037
  10. BUPIVACAINE. [Suspect]
     Active Substance: BUPIVACAINE
     Indication: SPINAL PAIN

REACTIONS (5)
  - Pain [None]
  - Tendon rupture [Unknown]
  - Chills [Recovering/Resolving]
  - Pruritus [Recovered/Resolved]
  - Tendonitis [Unknown]

NARRATIVE: CASE EVENT DATE: 2015
